FAERS Safety Report 4352257-3 (Version None)
Quarter: 2004Q2

REPORT INFORMATION
  Report Type: 
  Country: None (occurrence: None)
  Receive Date: 20040423
  Receipt Date: 20030725
  Transmission Date: 20050107
  Serious: Yes (Hospitalization, Disabling, Other)
  Sender: FDA-Public Use
  Company Number: CIP03000148

PATIENT
  Age: 94 Year
  Sex: Female
  Weight: 66.7 kg

DRUGS (5)
  1. MACRODANTIN [Suspect]
     Indication: URINARY TRACT INFECTION
     Dosage: 100 MG TWICE DAILY, ORAL
     Route: 048
     Dates: start: 19980101, end: 20000101
  2. ZOLOFT [Concomitant]
  3. PRILOSEC [Concomitant]
  4. NORVASC [Concomitant]
  5. FOSAMAX [Concomitant]

REACTIONS (6)
  - CHEST X-RAY ABNORMAL [None]
  - DYSPNOEA [None]
  - PULMONARY FIBROSIS [None]
  - PULMONARY FUNCTION TEST DECREASED [None]
  - PULMONARY HYPERTENSION [None]
  - RESTRICTIVE PULMONARY DISEASE [None]
